FAERS Safety Report 13280817 (Version 1)
Quarter: 2017Q1

REPORT INFORMATION
  Report Type: Spontaneous
  Country: US (occurrence: US)
  Receive Date: 20170301
  Receipt Date: 20170301
  Transmission Date: 20170428
  Serious: No
  Sender: FDA-Public Use
  Company Number: US-INSYS THERAPEUTICS, INC-INS201603-000134

PATIENT
  Sex: Female
  Weight: 83.91 kg

DRUGS (7)
  1. FENTANYL TRANSDERMAL SYSTEM [Concomitant]
     Active Substance: FENTANYL
     Indication: DRUG TOLERANCE
  2. SUBSYS [Suspect]
     Active Substance: FENTANYL
     Indication: DRUG TOLERANCE
  3. HYDROCODONE [Concomitant]
     Active Substance: HYDROCODONE
     Indication: BACK PAIN
  4. NORCO [Concomitant]
     Active Substance: ACETAMINOPHEN\HYDROCODONE BITARTRATE
  5. SUBSYS [Suspect]
     Active Substance: FENTANYL
     Indication: BACK PAIN
     Dates: start: 20160308
  6. FENTANYL TRANSDERMAL SYSTEM [Concomitant]
     Active Substance: FENTANYL
     Indication: BACK PAIN
  7. HYDROCODONE [Concomitant]
     Active Substance: HYDROCODONE
     Indication: DRUG TOLERANCE

REACTIONS (1)
  - Drug ineffective for unapproved indication [Unknown]
